FAERS Safety Report 5254670-9 (Version None)
Quarter: 2007Q1

REPORT INFORMATION
  Report Type: 
  Country: None (occurrence: None)
  Receive Date: 20070302
  Receipt Date: 20070222
  Transmission Date: 20070707
  Serious: Yes (Other)
  Sender: FDA-Public Use
  Company Number: HK-PFIZER INC-2007015701

PATIENT
  Sex: Male

DRUGS (1)
  1. NICOTINE [Suspect]
     Indication: SMOKING CESSATION THERAPY
     Dosage: DAILY DOSE:10MG
     Route: 055
     Dates: start: 20070211, end: 20070215

REACTIONS (2)
  - HYPERSENSITIVITY [None]
  - RASH PUSTULAR [None]
